FAERS Safety Report 8229556-8 (Version None)
Quarter: 2012Q1

REPORT INFORMATION
  Report Type: 
  Country: None (occurrence: None)
  Receive Date: 20120322
  Receipt Date: 20120320
  Transmission Date: 20120608
  Serious: Yes (Death, Hospitalization)
  Sender: FDA-Public Use
  Company Number: GB-ELI_LILLY_AND_COMPANY-GB201203005525

PATIENT
  Age: 49 Year
  Sex: Female

DRUGS (3)
  1. BYDUREON [Suspect]
     Dosage: 2 MG, WEEKLY (1/W)
     Dates: start: 20120217
  2. PIOGLITAZONE [Concomitant]
     Dosage: 45 MG, QD
  3. METFORMIN HCL [Concomitant]
     Dosage: 1 G, BID

REACTIONS (2)
  - SEPSIS [None]
  - URINARY TRACT INFECTION [None]
